FAERS Safety Report 5071833-6 (Version None)
Quarter: 2006Q3

REPORT INFORMATION
  Report Type: 
  Country: None (occurrence: None)
  Receive Date: 20060801
  Receipt Date: 20060721
  Transmission Date: 20061208
  Serious: Yes (Other)
  Sender: FDA-Public Use
  Company Number: 200613103GDS

PATIENT
  Age: 34 Year
  Sex: Female

DRUGS (1)
  1. AVELOX [Suspect]
     Indication: ACUTE SINUSITIS
     Dosage: 400 MG TOTAL DAILY ORAL
     Route: 048
     Dates: start: 20051221, end: 20051225

REACTIONS (3)
  - MUSCLE RUPTURE [None]
  - MUSCULOSKELETAL PAIN [None]
  - TENDON RUPTURE [None]
